FAERS Safety Report 11958795 (Version 1)
Quarter: 2016Q1

REPORT INFORMATION
  Report Type: Spontaneous
  Country: US (occurrence: US)
  Receive Date: 20160126
  Receipt Date: 20160126
  Transmission Date: 20160526
  Serious: No
  Sender: FDA-Public Use
  Company Number: US-ABBVIE-15K-163-1376937-00

PATIENT
  Sex: Male
  Weight: 78.09 kg

DRUGS (2)
  1. HUMIRA [Suspect]
     Active Substance: ADALIMUMAB
     Dosage: DAY 7
     Route: 065
     Dates: start: 201411
  2. HUMIRA [Suspect]
     Active Substance: ADALIMUMAB
     Indication: PSORIASIS
     Dosage: LOADING DOSE
     Route: 065
     Dates: start: 201411, end: 201411

REACTIONS (1)
  - Inappropriate schedule of drug administration [Unknown]
